FAERS Safety Report 8182299-1 (Version None)
Quarter: 2012Q1

REPORT INFORMATION
  Report Type: 
  Country: None (occurrence: None)
  Receive Date: 20120302
  Receipt Date: 20120228
  Transmission Date: 20120608
  Serious: Yes (Death)
  Sender: FDA-Public Use
  Company Number: PHHY2012BR017646

PATIENT
  Sex: Male

DRUGS (3)
  1. DEXAMETHASONE [Concomitant]
     Indication: SWELLING
     Dosage: 4 MG, Q8H
     Dates: start: 20110701
  2. EXFORGE HCT [Suspect]
     Indication: BLOOD PRESSURE
     Dosage: 1 DF (160/5/25 MG), A DAY
  3. ATORVASTATIN CALCIUM [Concomitant]
     Indication: BLOOD CHOLESTEROL
     Dosage: 20 MG, A DAY

REACTIONS (4)
  - BRAIN NEOPLASM [None]
  - SEPTIC SHOCK [None]
  - URINARY TRACT INFECTION [None]
  - PNEUMONIA [None]
